FAERS Safety Report 20056191 (Version 1)
Quarter: 2021Q4

REPORT INFORMATION
  Report Type: Spontaneous
  Country: US (occurrence: None)
  Receive Date: 20211111
  Receipt Date: 20211111
  Transmission Date: 20220303
  Serious: No
  Sender: FDA-Public Use
  Company Number: US-ROCHE-2869327

PATIENT
  Age: 17 Year
  Sex: Female
  Weight: 54.43 kg

DRUGS (4)
  1. PULMOZYME [Suspect]
     Active Substance: DORNASE ALFA
     Indication: Cystic fibrosis
     Route: 055
     Dates: start: 20110911
  2. FLOVENT [Concomitant]
     Active Substance: FLUTICASONE PROPIONATE
     Dates: start: 20200911
  3. ALBUTEROL [Concomitant]
     Active Substance: ALBUTEROL
     Dates: start: 20200911
  4. BACTRIM [Concomitant]
     Active Substance: SULFAMETHOXAZOLE\TRIMETHOPRIM
     Dates: start: 20200911

REACTIONS (2)
  - Product dose omission in error [Unknown]
  - No adverse event [Unknown]

NARRATIVE: CASE EVENT DATE: 20210701
